FAERS Safety Report 4549068-2 (Version None)
Quarter: 2004Q4

REPORT INFORMATION
  Report Type: 
  Country: None (occurrence: None)
  Receive Date: 20041227
  Receipt Date: 20041001
  Transmission Date: 20050328
  Serious: No
  Sender: FDA-Public Use
  Company Number: 04P-163-0261811-00

PATIENT
  Age: 56 Year
  Sex: Female
  Weight: 55.3388 kg

DRUGS (9)
  1. HUMIRA [Suspect]
     Indication: RHEUMATOID ARTHRITIS
     Dosage: SEE IMAGE
     Route: 058
     Dates: start: 20030101, end: 20040301
  2. HUMIRA [Suspect]
     Indication: RHEUMATOID ARTHRITIS
     Dosage: SEE IMAGE
     Route: 058
     Dates: start: 20040301
  3. PREDNISONE [Concomitant]
  4. ESOMEPRAZOLE [Concomitant]
  5. ATORVASTATIN [Concomitant]
  6. CELECOXIB [Concomitant]
  7. NIFEDIPINE [Concomitant]
  8. WARFARIN [Concomitant]
  9. IMIPRARMINE [Concomitant]

REACTIONS (8)
  - BURNING SENSATION [None]
  - DRUG INEFFECTIVE [None]
  - HAEMORRHAGE [None]
  - HERPES SIMPLEX [None]
  - SECRETION DISCHARGE [None]
  - SINUSITIS [None]
  - SKIN NODULE [None]
  - SWELLING [None]
